FAERS Safety Report 7503647-9 (Version None)
Quarter: 2011Q2

REPORT INFORMATION
  Report Type: 
  Country: None (occurrence: None)
  Receive Date: 20110518
  Receipt Date: 20110505
  Transmission Date: 20111010
  Serious: Yes (Hospitalization, Other)
  Sender: FDA-Public Use
  Company Number: 2011MA005806

PATIENT
  Age: 75 Year
  Sex: Male

DRUGS (7)
  1. ROSUVASTATIN [Concomitant]
  2. ATENOLOL [Suspect]
     Indication: HYPERTENSION
     Dosage: 50 MG;QD;PO
     Route: 048
  3. SPIRONOLACTONE [Suspect]
     Indication: HYPERTENSION
     Dosage: 100 MG;QD;PO
     Route: 048
     Dates: start: 20110222
  4. AZD5363 (NO PREF. NAME) [Suspect]
     Indication: NEOPLASM MALIGNANT
     Dosage: 160 MG;QD;PO
     Route: 048
     Dates: start: 20110222
  5. SIMVASTATIN [Concomitant]
  6. BENDROFLUMETHIAZIDE [Concomitant]
  7. AZD5363 (NO PREF. NAME) [Suspect]
     Indication: NEOPLASM MALIGNANT
     Dosage: 160 MG;BID;PO
     Route: 048
     Dates: start: 20110301

REACTIONS (3)
  - SINUS BRADYCARDIA [None]
  - ARRHYTHMIA [None]
  - HYPOKALAEMIA [None]
